FAERS Safety Report 24447118 (Version 1)
Quarter: 2024Q4

REPORT INFORMATION
  Report Type: Spontaneous
  Country: FR (occurrence: FR)
  Receive Date: 20241016
  Receipt Date: 20241016
  Transmission Date: 20250114
  Serious: Yes (Hospitalization, Other)
  Sender: BRISTOL-MYERS SQUIBB COMPANY
  Company Number: None

PATIENT
  Age: 38 Year
  Sex: Female
  Weight: 88 kg

DRUGS (3)
  1. OPDIVO [Suspect]
     Active Substance: NIVOLUMAB
     Indication: Metastatic malignant melanoma
     Dosage: NC DURING DUAL IMMUNOTHERAPY THEN 480 MG EVERY 3 WEEKS AS MONOTHERAPY
     Route: 042
     Dates: start: 20210402
  2. OPDIVO [Suspect]
     Active Substance: NIVOLUMAB
     Dosage: NC DURING DUAL IMMUNOTHERAPY THEN 480 MG EVERY 3 WEEKS AS MONOTHERAPY
     Route: 042
     Dates: end: 20240207
  3. YERVOY [Suspect]
     Active Substance: IPILIMUMAB
     Indication: Metastatic malignant melanoma
     Dosage: NOT SPECIFIED
     Route: 042
     Dates: start: 20210402, end: 20210604

REACTIONS (4)
  - Blood thyroid stimulating hormone decreased [Recovered/Resolved with Sequelae]
  - Hepatic cytolysis [Recovered/Resolved]
  - Immune-mediated hypophysitis [Recovered/Resolved with Sequelae]
  - Off label use [Unknown]

NARRATIVE: CASE EVENT DATE: 20210511
